FAERS Safety Report 10527593 (Version 1)
Quarter: 2014Q4

REPORT INFORMATION
  Report Type: Report from Study
  Country: US (occurrence: US)
  Receive Date: 20141020
  Receipt Date: 20141020
  Transmission Date: 20150528
  Serious: Yes (Other)
  Sender: FDA-Public Use
  Company Number: US-AMGEN-USASL2014079633

PATIENT
  Age: 92 Year
  Sex: Female

DRUGS (2)
  1. PREDNISONE. [Concomitant]
     Active Substance: PREDNISONE
     Indication: RASH
  2. PROLIA [Suspect]
     Active Substance: DENOSUMAB
     Indication: OSTEOPOROSIS POSTMENOPAUSAL
     Dosage: UNK UNK, Q6MO
     Route: 065

REACTIONS (7)
  - Rash [Recovered/Resolved]
  - Atrial fibrillation [Unknown]
  - Sepsis [Unknown]
  - Fall [Unknown]
  - Localised infection [Unknown]
  - Cellulitis [Recovering/Resolving]
  - Infection [Unknown]
